FAERS Safety Report 17504774 (Version 1)
Quarter: 2020Q1

REPORT INFORMATION
  Report Type: Spontaneous
  Country: CN (occurrence: CN)
  Receive Date: 20200305
  Receipt Date: 20200305
  Transmission Date: 20200409
  Serious: Yes (Other)
  Sender: FDA-Public Use
  Company Number: CN-UCBSA-2020009037

PATIENT
  Age: 10 Month
  Sex: Male
  Weight: 7.1 kg

DRUGS (10)
  1. ZUFEN [BACLOFEN] [Suspect]
     Active Substance: BACLOFEN
     Indication: RECTAL PERFORATION
     Dosage: 7.5 MILLIGRAM, 2X/DAY (BID)
     Route: 048
     Dates: start: 20190903, end: 20190903
  2. CLONAZEPAM. [Suspect]
     Active Substance: CLONAZEPAM
     Indication: SEDATIVE THERAPY
  3. KEPPRA [Suspect]
     Active Substance: LEVETIRACETAM
     Indication: RECTAL PERFORATION
     Dosage: 0.7 MILLILITER, 2X/DAY (BID)
     Route: 048
     Dates: start: 20190903, end: 20190917
  4. KEPPRA [Suspect]
     Active Substance: LEVETIRACETAM
     Indication: COLON OPERATION
  5. KEPPRA [Suspect]
     Active Substance: LEVETIRACETAM
     Indication: OFF LABEL USE
  6. ZUFEN [BACLOFEN] [Suspect]
     Active Substance: BACLOFEN
     Indication: COLON OPERATION
  7. CLONAZEPAM. [Suspect]
     Active Substance: CLONAZEPAM
     Indication: COLON OPERATION
  8. KEPPRA [Suspect]
     Active Substance: LEVETIRACETAM
     Indication: EPILEPSY
  9. ZUFEN [BACLOFEN] [Suspect]
     Active Substance: BACLOFEN
     Indication: SEDATIVE THERAPY
  10. CLONAZEPAM. [Suspect]
     Active Substance: CLONAZEPAM
     Indication: RECTAL PERFORATION
     Dosage: 0.125 MILLIGRAM, 2X/DAY (BID)
     Route: 048
     Dates: start: 20190903, end: 20190903

REACTIONS (1)
  - Bradycardia [Recovering/Resolving]

NARRATIVE: CASE EVENT DATE: 20190903
